FAERS Safety Report 24436605 (Version 1)
Quarter: 2024Q4

REPORT INFORMATION
  Report Type: Spontaneous
  Country: US (occurrence: US)
  Receive Date: 20241015
  Receipt Date: 20241015
  Transmission Date: 20250115
  Serious: Yes (Death, Hospitalization, Other)
  Sender: RANBAXY
  Company Number: US-SUN PHARMACEUTICAL INDUSTRIES LTD-2024R1-473203

PATIENT
  Age: 30 Year
  Sex: Male

DRUGS (2)
  1. BACTRIM [Suspect]
     Active Substance: SULFAMETHOXAZOLE\TRIMETHOPRIM
     Indication: Pneumocystis jirovecii pneumonia
     Dosage: UNK
     Route: 065
  2. VALGANCICLOVIR [Suspect]
     Active Substance: VALGANCICLOVIR
     Indication: Pneumocystis jirovecii pneumonia
     Dosage: 900 MILLIGRAM, BID
     Route: 065

REACTIONS (4)
  - Condition aggravated [Fatal]
  - Acute respiratory distress syndrome [Fatal]
  - Septic shock [Fatal]
  - Pneumonia cytomegaloviral [Unknown]
